FAERS Safety Report 18268668 (Version 1)
Quarter: 2020Q3

REPORT INFORMATION
  Report Type: Spontaneous
  Country: US (occurrence: US)
  Receive Date: 20200915
  Receipt Date: 20200915
  Transmission Date: 20201103
  Serious: No
  Sender: FDA-Public Use
  Company Number: US-PERRIGO-20US007323

PATIENT
  Sex: Female
  Weight: 56.69 kg

DRUGS (2)
  1. MINOXIDIL. [Suspect]
     Active Substance: MINOXIDIL
     Dosage: APPROX. 1/4 DROPPER, SINGLE
     Route: 061
     Dates: start: 20200518, end: 20200518
  2. MINOXIDIL. [Suspect]
     Active Substance: MINOXIDIL
     Indication: ALOPECIA
     Dosage: APPROX. 1/2 DROPPER, SINGLE
     Route: 061
     Dates: start: 2020, end: 2020

REACTIONS (5)
  - Product administered at inappropriate site [Recovered/Resolved]
  - Underdose [Recovered/Resolved]
  - Off label use [Recovered/Resolved]
  - Exposure via skin contact [Recovered/Resolved]
  - Inappropriate schedule of product administration [Recovered/Resolved]

NARRATIVE: CASE EVENT DATE: 2020
